FAERS Safety Report 9230733 (Version 1)
Quarter: 2013Q2

REPORT INFORMATION
  Report Type: Spontaneous
  Country: US (occurrence: US)
  Receive Date: 20130415
  Receipt Date: 20130415
  Transmission Date: 20140414
  Serious: Yes (Other)
  Sender: FDA-Public Use
  Company Number: US-ASTRAZENECA-2013SE22627

PATIENT
  Age: 27021 Day
  Sex: Female
  Weight: 68.3 kg

DRUGS (2)
  1. BRILINTA [Suspect]
     Indication: ACUTE MYOCARDIAL INFARCTION
     Route: 048
     Dates: start: 20130317, end: 20130401
  2. PLAVIX [Suspect]
     Route: 065

REACTIONS (1)
  - Haemorrhage intracranial [Unknown]
